FAERS Safety Report 7142779-4 (Version None)
Quarter: 2010Q4

REPORT INFORMATION
  Report Type: 
  Country: None (occurrence: None)
  Receive Date: 20101207
  Receipt Date: 20101124
  Transmission Date: 20110411
  Serious: Yes (Hospitalization)
  Sender: FDA-Public Use
  Company Number: CV-MERCK-1011USA03503

PATIENT
  Sex: Female

DRUGS (1)
  1. FOSAMAX PLUS D [Suspect]
     Route: 048
     Dates: start: 20100324, end: 20100519

REACTIONS (17)
  - ADVERSE DRUG REACTION [None]
  - ALOPECIA [None]
  - APHASIA [None]
  - ARTHRALGIA [None]
  - BLISTER [None]
  - BURNING SENSATION [None]
  - EYE IRRITATION [None]
  - FATIGUE [None]
  - LIVER DISORDER [None]
  - ODYNOPHAGIA [None]
  - OESOPHAGEAL INJURY [None]
  - OROPHARYNGEAL PAIN [None]
  - PYREXIA [None]
  - RASH GENERALISED [None]
  - RASH MACULO-PAPULAR [None]
  - SCAR [None]
  - WOUND [None]
